APPROVED DRUG PRODUCT: CLARITHROMYCIN
Active Ingredient: CLARITHROMYCIN
Strength: 500MG
Dosage Form/Route: TABLET, EXTENDED RELEASE;ORAL
Application: A065154 | Product #001 | TE Code: AB
Applicant: DR REDDYS LABORATORIES SA
Approved: May 18, 2005 | RLD: No | RS: Yes | Type: RX